FAERS Safety Report 6297258-3 (Version None)
Quarter: 2009Q3

REPORT INFORMATION
  Report Type: 
  Country: None (occurrence: None)
  Receive Date: 20090804
  Receipt Date: 20090804
  Transmission Date: 20100115
  Serious: No
  Sender: FDA-Public Use
  Company Number: None

PATIENT
  Sex: Female

DRUGS (2)
  1. VALPROIC ACID ER [Suspect]
     Indication: EPILEPSY
     Dosage: 500 MG TAB 1 TAB IN AM PO, 2 TAB IN PM PO
     Route: 048
  2. VALPROIC ACID ER [Suspect]
     Indication: MIGRAINE
     Dosage: 500 MG TAB 1 TAB IN AM PO, 2 TAB IN PM PO
     Route: 048

REACTIONS (1)
  - PRODUCT SUBSTITUTION ISSUE [None]
